FAERS Safety Report 10213532 (Version 1)
Quarter: 2014Q2

REPORT INFORMATION
  Report Type: Spontaneous
  Country: ES (occurrence: ES)
  Receive Date: 20140603
  Receipt Date: 20140603
  Transmission Date: 20141212
  Serious: Yes (Hospitalization)
  Sender: FDA-Public Use
  Company Number: ES-JNJFOC-20140514956

PATIENT
  Age: 93 Year
  Sex: Female

DRUGS (3)
  1. RISPERDAL FLAS [Suspect]
     Indication: AGITATION
     Route: 048
     Dates: start: 20140412, end: 20140423
  2. DEPRAX [Suspect]
     Indication: AGITATION
     Route: 048
     Dates: start: 20140412, end: 20140423
  3. AMOXICILLIN CLAVULANIC ACID [Concomitant]
     Indication: URINARY TRACT INFECTION
     Route: 065
     Dates: start: 201404

REACTIONS (3)
  - Somnolence [Recovered/Resolved]
  - Aspiration [Unknown]
  - Vomiting [Unknown]
